FAERS Safety Report 11883157 (Version 2)
Quarter: 2016Q1

REPORT INFORMATION
  Report Type: Spontaneous
  Country: US (occurrence: US)
  Receive Date: 20151231
  Receipt Date: 20160225
  Transmission Date: 20160526
  Serious: Yes (Death, Hospitalization, Other)
  Sender: FDA-Public Use
  Company Number: US-INCYTE CORPORATION-2015IN006978

PATIENT
  Sex: Male
  Weight: 79.4 kg

DRUGS (4)
  1. VIDAZA [Concomitant]
     Active Substance: AZACITIDINE
     Dosage: UNK
     Dates: start: 20150928
  2. JAKAFI [Suspect]
     Active Substance: RUXOLITINIB
     Indication: MYELOFIBROSIS
     Dosage: 15 MG, BID
     Route: 048
     Dates: start: 20151210, end: 20151217
  3. CITALOPRAM [Concomitant]
     Active Substance: CITALOPRAM HYDROBROMIDE
     Indication: DEPRESSION
     Dosage: UNK
  4. VIDAZA [Concomitant]
     Active Substance: AZACITIDINE
     Indication: PRODUCT USED FOR UNKNOWN INDICATION
     Dosage: UNK
     Dates: start: 20150202, end: 20150717

REACTIONS (11)
  - Failure to thrive [Unknown]
  - Confusional state [Recovering/Resolving]
  - Dyspnoea [Unknown]
  - Depression [Unknown]
  - Thrombocytopenia [Unknown]
  - Asthenia [Unknown]
  - Death [Fatal]
  - Renal failure [Not Recovered/Not Resolved]
  - Dehydration [Unknown]
  - Hyponatraemia [Recovering/Resolving]
  - Chest pain [Unknown]
